FAERS Safety Report 6271577-9 (Version None)
Quarter: 2009Q3

REPORT INFORMATION
  Report Type: 
  Country: None (occurrence: None)
  Receive Date: 20090717
  Receipt Date: 20080415
  Transmission Date: 20100115
  Serious: Yes (Other)
  Sender: FDA-Public Use
  Company Number: US-ASTRAZENECA-2006UW21947

PATIENT
  Age: 52 Year
  Sex: Female
  Weight: 82.1 kg

DRUGS (9)
  1. SEROQUEL [Suspect]
     Indication: SCHIZOPHRENIA
     Route: 048
     Dates: start: 20040123
  2. SEROQUEL [Suspect]
     Indication: DEPRESSION
     Route: 048
     Dates: start: 20040123
  3. CLONAZEPAM [Concomitant]
     Dosage: STRENGTH-0.5 MG, 1 MG
     Dates: start: 20040204
  4. PAXIL CR [Concomitant]
     Dosage: STRENGTH-12.5 MG, 25MG. DOSE-40 MG DAILY
     Dates: start: 20040225
  5. LAMISIL [Concomitant]
     Dates: start: 20040903
  6. LEVAQUIN [Concomitant]
     Dosage: STRENGTH-750 MG, 500 MG
     Dates: start: 20040823
  7. HYDROXYZINE [Concomitant]
     Dosage: STRENGTH-10 MG,25MG DOSE-10-20 MG DAILY
     Dates: start: 20060908
  8. LIPITOR [Concomitant]
     Dates: start: 20070111
  9. ALPRAZOLAM [Concomitant]
     Dosage: STRENGTH-1MG, 2 MG DOSE-3 MG DAILY
     Dates: start: 20060908

REACTIONS (6)
  - BLOOD CHOLESTEROL INCREASED [None]
  - DIABETES MELLITUS [None]
  - DIABETIC VASCULAR DISORDER [None]
  - OBESITY [None]
  - PANCREATITIS [None]
  - TYPE 2 DIABETES MELLITUS [None]
